FAERS Safety Report 10637651 (Version 1)
Quarter: 2014Q4

REPORT INFORMATION
  Report Type: Spontaneous
  Country: US (occurrence: None)
  Receive Date: 20141205
  Receipt Date: 20141205
  Transmission Date: 20150529
  Serious: No
  Sender: FDA-Public Use
  Company Number: None

PATIENT
  Age: 57 Year
  Sex: Female
  Weight: 54.43 kg

DRUGS (2)
  1. PRADAXA [Suspect]
     Active Substance: DABIGATRAN ETEXILATE MESYLATE
     Indication: ATRIAL FIBRILLATION
     Dosage: 1 PILL TWICE DAILY
     Route: 048
  2. PRADAXA [Suspect]
     Active Substance: DABIGATRAN ETEXILATE MESYLATE
     Indication: EJECTION FRACTION DECREASED
     Dosage: 1 PILL TWICE DAILY
     Route: 048

REACTIONS (3)
  - Throat irritation [None]
  - Oesophagitis [None]
  - Chest pain [None]

NARRATIVE: CASE EVENT DATE: 20141129
